FAERS Safety Report 9864741 (Version 2)
Quarter: 2014Q1

REPORT INFORMATION
  Report Type: Report from Study
  Country: US (occurrence: US)
  Receive Date: 20140203
  Receipt Date: 20140203
  Transmission Date: 20141002
  Serious: Yes (Hospitalization, Other)
  Sender: FDA-Public Use
  Company Number: US-ABBVIE-12P-163-1002032-00

PATIENT
  Age: 65 Year
  Sex: Male
  Weight: 72.64 kg

DRUGS (5)
  1. HUMIRA [Suspect]
     Indication: CROHN^S DISEASE
     Route: 058
     Dates: start: 201101, end: 201205
  2. HUMIRA [Suspect]
     Route: 058
     Dates: start: 201208
  3. HUMIRA [Suspect]
     Route: 058
  4. ATENOLOL [Concomitant]
     Indication: PRODUCT USED FOR UNKNOWN INDICATION
  5. AMLODIPINE [Concomitant]
     Indication: PRODUCT USED FOR UNKNOWN INDICATION

REACTIONS (12)
  - Intestinal stenosis [Recovered/Resolved]
  - Pyrexia [Recovered/Resolved]
  - Surgery [Unknown]
  - Postoperative wound infection [Recovered/Resolved]
  - Abdominal pain [Recovered/Resolved]
  - Wound drainage [Recovered/Resolved]
  - Memory impairment [Not Recovered/Not Resolved]
  - Injection site pain [Recovered/Resolved]
  - Flatulence [Recovered/Resolved]
  - Abdominal pain [Recovering/Resolving]
  - Small intestinal obstruction [Recovering/Resolving]
  - Product quality issue [Unknown]
